FAERS Safety Report 4921248-3 (Version None)
Quarter: 2006Q1

REPORT INFORMATION
  Report Type: 
  Country: None (occurrence: None)
  Receive Date: 20060224
  Receipt Date: 20060214
  Transmission Date: 20060701
  Serious: Yes (Other)
  Sender: FDA-Public Use
  Company Number: US-KINGPHARMUSA00001-K200600217

PATIENT
  Age: 15 Year
  Sex: Male

DRUGS (4)
  1. SEPTRA [Suspect]
     Indication: PROPHYLAXIS
     Dosage: 1 TABLET, SATURDAYS/SUNDAYS, BID
     Route: 048
     Dates: start: 20051001, end: 20050101
  2. EPOGEN [Suspect]
     Indication: ANAEMIA OF MALIGNANT DISEASE
     Dosage: 40,000 IU, QW
     Route: 058
     Dates: start: 20051110, end: 20051202
  3. PREDNISONE [Concomitant]
     Dosage: UNK, UNK
     Dates: start: 20051001
  4. ALLOPURINOL [Concomitant]
     Dates: start: 20051003, end: 20051010

REACTIONS (3)
  - APLASIA PURE RED CELL [None]
  - PANCYTOPENIA [None]
  - PLATELET COUNT DECREASED [None]
